FAERS Safety Report 12911648 (Version 1)
Quarter: 2016Q4

REPORT INFORMATION
  Report Type: Spontaneous
  Country: US (occurrence: US)
  Receive Date: 20161103
  Receipt Date: 20161103
  Transmission Date: 20170207
  Serious: Yes (Disabling)
  Sender: FDA-Public Use
  Company Number: None

PATIENT
  Age: 49 Year
  Sex: Male
  Weight: 81 kg

DRUGS (5)
  1. FINASTERIDE. [Suspect]
     Active Substance: FINASTERIDE
     Indication: PROSTATOMEGALY
     Dosage: ?          QUANTITY:1 TABLET(S);?
     Route: 048
     Dates: start: 20111128, end: 20111206
  2. VITAMIN C [Concomitant]
     Active Substance: ASCORBIC ACID
  3. ZINC [Concomitant]
     Active Substance: ZINC\ZINC CHLORIDE
  4. MAGNESIUM [Concomitant]
     Active Substance: MAGNESIUM
  5. REMERON [Concomitant]
     Active Substance: MIRTAZAPINE

REACTIONS (6)
  - Feeling abnormal [None]
  - Ejaculation failure [None]
  - Loss of libido [None]
  - Erectile dysfunction [None]
  - Libido decreased [None]
  - Depression [None]

NARRATIVE: CASE EVENT DATE: 20111128
